FAERS Safety Report 18683121 (Version 1)
Quarter: 2020Q4

REPORT INFORMATION
  Report Type: Spontaneous
  Country: CN (occurrence: CN)
  Receive Date: 20201230
  Receipt Date: 20201230
  Transmission Date: 20210114
  Serious: Yes (Hospitalization)
  Sender: FDA-Public Use
  Company Number: CN-EISAI MEDICAL RESEARCH-EC-2020-085704

PATIENT
  Age: 66 Year
  Sex: Male
  Weight: 45 kg

DRUGS (2)
  1. DONEPEZIL. [Suspect]
     Active Substance: DONEPEZIL
     Indication: CEREBELLAR ATROPHY
     Route: 048
     Dates: start: 20171013, end: 20201120
  2. OLANZAPINE. [Suspect]
     Active Substance: OLANZAPINE
     Indication: CEREBELLAR ATROPHY
     Dosage: 10 MG (FREQUENCY UNKNOWN)
     Route: 048
     Dates: start: 20171013, end: 20201120

REACTIONS (1)
  - Drug-induced liver injury [Recovering/Resolving]

NARRATIVE: CASE EVENT DATE: 20201121
